FAERS Safety Report 8614820 (Version 2)
Quarter: 2013Q2

REPORT INFORMATION
  Report Type: Spontaneous
  Country: US (occurrence: US)
  Receive Date: 20120614
  Receipt Date: 20130617
  Transmission Date: 20140414
  Serious: Yes (Hospitalization, Disabling)
  Sender: FDA-Public Use
  Company Number: US-ASTRAZENECA-2012SE35828

PATIENT
  Age: 47 Year
  Sex: Female

DRUGS (16)
  1. NEXIUM [Suspect]
     Indication: GASTROOESOPHAGEAL REFLUX DISEASE
     Dosage: ONCE A DAY
     Route: 048
     Dates: start: 1995, end: 2011
  2. TUMS [Concomitant]
  3. MILK OF MAGNESIA [Concomitant]
  4. GAVISCON [Concomitant]
  5. PEPTO-BISMOL [Concomitant]
  6. ROLAIDS [Concomitant]
  7. MYLANTA [Concomitant]
  8. PROTONIX [Concomitant]
  9. PIROXICAM [Concomitant]
  10. ALPRAZOLAM [Concomitant]
  11. XANAX [Concomitant]
  12. ATENOLOL [Concomitant]
     Indication: ANGINA PECTORIS
  13. CELEBREX [Concomitant]
     Indication: ARTHRITIS
  14. ANASTROZOLE [Concomitant]
     Indication: NEOPLASM MALIGNANT
  15. METFORMINE [Concomitant]
     Indication: DIABETES MELLITUS
  16. PREDNISONE [Concomitant]

REACTIONS (21)
  - Back pain [Unknown]
  - Breast cancer [Unknown]
  - Chest pain [Unknown]
  - Intestinal obstruction [Unknown]
  - Neck pain [Unknown]
  - Sarcoidosis [Unknown]
  - Depression [Unknown]
  - Bone density decreased [Unknown]
  - Osteoporosis [Unknown]
  - Anxiety [Unknown]
  - Arthritis [Unknown]
  - Calcium deficiency [Unknown]
  - Diabetes mellitus [Unknown]
  - Gastric haemorrhage [Unknown]
  - Multiple fractures [Unknown]
  - Liver disorder [Unknown]
  - Musculoskeletal pain [Unknown]
  - Neck injury [Unknown]
  - Sleep disorder [Unknown]
  - Vitamin D deficiency [Unknown]
  - Joint injury [Unknown]
